FAERS Safety Report 24592222 (Version 1)
Quarter: 2024Q4

REPORT INFORMATION
  Report Type: Spontaneous
  Country: CH (occurrence: CH)
  Receive Date: 20241108
  Receipt Date: 20241108
  Transmission Date: 20250115
  Serious: Yes (Hospitalization, Other)
  Sender: SANOFI AVENTIS
  Company Number: None

PATIENT
  Age: 43 Year
  Sex: Female

DRUGS (13)
  1. CLORAZEPATE DIPOTASSIUM [Suspect]
     Active Substance: CLORAZEPATE DIPOTASSIUM
     Indication: Product used for unknown indication
     Dosage: UNK (QUANTITY TAKEN UNKNOWN)
     Route: 065
     Dates: start: 20240715, end: 20240715
  2. ALPRAZOLAM [Suspect]
     Active Substance: ALPRAZOLAM
     Indication: Product used for unknown indication
     Dosage: UNK (QUANTITY TAKEN UNKNOWN)
     Route: 065
     Dates: start: 20240715, end: 20240715
  3. ZOLPIDEM TARTRATE [Suspect]
     Active Substance: ZOLPIDEM TARTRATE
     Indication: Product used for unknown indication
     Dosage: UNK (QUANTITY TAKEN UNKNOWN)
     Route: 065
     Dates: start: 20240715, end: 20240715
  4. TRAMADOL HYDROCHLORIDE [Suspect]
     Active Substance: TRAMADOL HYDROCHLORIDE
     Indication: Product used for unknown indication
     Dosage: UNK (QUANTITY TAKEN UNKNOWN)
     Route: 065
     Dates: start: 20240715, end: 20240715
  5. ESOMEPRAZOLE [Suspect]
     Active Substance: ESOMEPRAZOLE
     Indication: Product used for unknown indication
     Dosage: UNK (QUANTITY TAKEN UNKNOWN)
     Route: 065
     Dates: start: 20240715, end: 20240715
  6. QUETIAPINE FUMARATE [Suspect]
     Active Substance: QUETIAPINE FUMARATE
     Indication: Product used for unknown indication
     Dosage: UNK (QUANTITY TAKEN UNKNOWN)
     Route: 065
     Dates: start: 20240715, end: 20240715
  7. TORSEMIDE [Suspect]
     Active Substance: TORSEMIDE
     Indication: Product used for unknown indication
     Dosage: UNK (QUANTITY TAKEN UNKNOWN)
     Route: 065
     Dates: start: 20240715, end: 20240715
  8. VALACYCLOVIR HYDROCHLORIDE [Suspect]
     Active Substance: VALACYCLOVIR HYDROCHLORIDE
     Indication: Product used for unknown indication
     Dosage: UNK (QUANTITY TAKEN UNKNOWN)
     Route: 065
     Dates: start: 20240715, end: 20240715
  9. ACETAMINOPHEN [Suspect]
     Active Substance: ACETAMINOPHEN
     Indication: Product used for unknown indication
     Dosage: UNK (QUANTITY TAKEN UNKNOWN)
     Route: 065
     Dates: start: 20240715, end: 20240715
  10. XANAX [Concomitant]
     Active Substance: ALPRAZOLAM
     Indication: Product used for unknown indication
     Dosage: UNK
     Route: 065
  11. ZOLPIDEM TARTRATE [Concomitant]
     Active Substance: ZOLPIDEM TARTRATE
     Indication: Product used for unknown indication
     Route: 065
  12. TIZANIDINE [Suspect]
     Active Substance: TIZANIDINE
     Indication: Product used for unknown indication
     Dosage: UNK (QUANTITY TAKEN UNKNOWN)
     Route: 065
     Dates: start: 20240715, end: 20240715
  13. TIZANIDINE [Concomitant]
     Active Substance: TIZANIDINE
     Indication: Product used for unknown indication
     Dosage: UNK
     Route: 065

REACTIONS (8)
  - Loss of consciousness [Recovering/Resolving]
  - Pneumonia aspiration [Recovering/Resolving]
  - Hypotension [Recovering/Resolving]
  - Miosis [Recovering/Resolving]
  - Hyporeflexia [Recovering/Resolving]
  - Confusional state [Recovering/Resolving]
  - Respiratory rate decreased [Recovered/Resolved]
  - Intentional overdose [Recovered/Resolved]

NARRATIVE: CASE EVENT DATE: 20240701
